FAERS Safety Report 7779362-3 (Version None)
Quarter: 2011Q3

REPORT INFORMATION
  Report Type: 
  Country: None (occurrence: None)
  Receive Date: 20110927
  Receipt Date: 20110919
  Transmission Date: 20111222
  Serious: Yes (Hospitalization)
  Sender: FDA-Public Use
  Company Number: US-BIOGENIDEC-2010BI034524

PATIENT
  Age: 56 Year
  Sex: Female

DRUGS (2)
  1. TYSABRI [Suspect]
     Route: 042
     Dates: start: 20110831
  2. TYSABRI [Suspect]
     Indication: MULTIPLE SCLEROSIS
     Route: 042
     Dates: start: 20080317, end: 20100811

REACTIONS (13)
  - INFUSION SITE HAEMATOMA [None]
  - MUSCLE SPASMS [None]
  - LENTIGO [None]
  - WEIGHT INCREASED [None]
  - HIP FRACTURE [None]
  - UPPER LIMB FRACTURE [None]
  - EAR INFECTION [None]
  - OROPHARYNGEAL PAIN [None]
  - MIGRAINE [None]
  - MENTAL IMPAIRMENT [None]
  - FALL [None]
  - FATIGUE [None]
  - MULTIPLE SCLEROSIS RELAPSE [None]
